FAERS Safety Report 10363861 (Version 1)
Quarter: 2014Q3

REPORT INFORMATION
  Report Type: Spontaneous
  Country: GB (occurrence: None)
  Receive Date: 20140801
  Receipt Date: 20140801
  Transmission Date: 20150326
  Serious: Yes (Disabling)
  Sender: FDA-Public Use
  Company Number: AUR-APL-2014-07940

PATIENT
  Age: 80 Year
  Sex: Female
  Weight: 48.8 kg

DRUGS (8)
  1. IBUROPFEN (IBUROPFEN) [Concomitant]
  2. CAHCICHEW D3 (CALCIUM CARBONATE, COLECALCIFEROL) [Concomitant]
  3. CITALOPRAM (CITALOPRAM) [Concomitant]
     Active Substance: CITALOPRAM HYDROBROMIDE
  4. DOCUSATE SODIUM (DOCUSATE SODIUM) [Concomitant]
     Active Substance: DOCUSATE SODIUM
  5. PARACETAMOL (PARACETAMOL) [Concomitant]
     Active Substance: ACETAMINOPHEN
  6. DONEPEZIL (DONEPEZIL) UNKNOWN [Suspect]
     Active Substance: DONEPEZIL
     Indication: PRODUCT USED FOR UNKNOWN INDICATION
     Dates: start: 20140509
  7. ADCAL (CALCIUM CARBONATE) [Concomitant]
  8. FUROSEMIDE (FUROSEMIDE) [Concomitant]
     Active Substance: FUROSEMIDE

REACTIONS (5)
  - Aggression [None]
  - Paranoia [None]
  - Personality change [None]
  - Confusional state [None]
  - Urinary incontinence [None]

NARRATIVE: CASE EVENT DATE: 20140709
